FAERS Safety Report 4992309-8 (Version None)
Quarter: 2006Q2

REPORT INFORMATION
  Report Type: 
  Country: None (occurrence: None)
  Receive Date: 20060502
  Receipt Date: 20060419
  Transmission Date: 20061013
  Serious: Yes (Death, Life-Threatening, Hospitalization)
  Sender: FDA-Public Use
  Company Number: US016978

PATIENT
  Age: 31 Year
  Sex: Female

DRUGS (6)
  1. PROVIGIL [Suspect]
     Indication: FATIGUE
     Dosage: 100 MG BID ORAL
     Route: 048
     Dates: start: 20060204, end: 20060210
  2. PROVIGIL [Suspect]
     Indication: MULTIPLE SCLEROSIS
     Dosage: 100 MG BID ORAL
     Route: 048
     Dates: start: 20060204, end: 20060210
  3. THORAZINE [Suspect]
     Indication: RASH
     Dates: start: 20060201, end: 20060201
  4. ZOLOFT [Concomitant]
  5. TRILEPTAL [Concomitant]
  6. TOPAMAX [Concomitant]

REACTIONS (28)
  - ANTINUCLEAR ANTIBODY POSITIVE [None]
  - ARTHRALGIA [None]
  - ASCITES [None]
  - AUTOIMMUNE DISORDER [None]
  - BACK PAIN [None]
  - BLOOD CREATINE PHOSPHOKINASE INCREASED [None]
  - BLOOD CREATINE PHOSPHOKINASE MB INCREASED [None]
  - BLOOD PRESSURE DECREASED [None]
  - CARDIAC FAILURE CONGESTIVE [None]
  - CARDIOMEGALY [None]
  - CHEST PAIN [None]
  - CONDITION AGGRAVATED [None]
  - DRUG DISPENSING ERROR [None]
  - ERYTHEMA [None]
  - EYE DISCHARGE [None]
  - FATIGUE [None]
  - GENERAL PHYSICAL HEALTH DETERIORATION [None]
  - GENITAL PRURITUS FEMALE [None]
  - HEPATOMEGALY [None]
  - HYPERSENSITIVITY [None]
  - MASS [None]
  - MYOCARDITIS [None]
  - PERICARDIAL EFFUSION [None]
  - PLEURAL EFFUSION [None]
  - PULMONARY OEDEMA [None]
  - RASH PRURITIC [None]
  - TROPONIN I INCREASED [None]
  - VASCULAR RESISTANCE SYSTEMIC INCREASED [None]
